FAERS Safety Report 7391086-3 (Version None)
Quarter: 2011Q2

REPORT INFORMATION
  Report Type: 
  Country: None (occurrence: None)
  Receive Date: 20110404
  Receipt Date: 20110328
  Transmission Date: 20111010
  Serious: Yes (Hospitalization)
  Sender: FDA-Public Use
  Company Number: FR-SP-2011-01732

PATIENT
  Sex: Male

DRUGS (6)
  1. IMMUCYST [Suspect]
     Indication: BLADDER ADENOCARCINOMA STAGE UNSPECIFIED
     Route: 043
     Dates: start: 20110121, end: 20110121
  2. KARDEGIC [Concomitant]
  3. CARTROL [Concomitant]
  4. COVERSYL [Concomitant]
  5. LEXOMIL [Concomitant]
  6. INEGY [Concomitant]

REACTIONS (10)
  - HAEMATURIA [None]
  - POLLAKIURIA [None]
  - PYREXIA [None]
  - CHILLS [None]
  - DYSURIA [None]
  - CHOLESTASIS [None]
  - BOVINE TUBERCULOSIS [None]
  - HYPERHIDROSIS [None]
  - CYTOLYTIC HEPATITIS [None]
  - LEUKOPENIA [None]
